FAERS Safety Report 8163649-9 (Version None)
Quarter: 2012Q1

REPORT INFORMATION
  Report Type: 
  Country: None (occurrence: None)
  Receive Date: 20120221
  Receipt Date: 20120103
  Transmission Date: 20120608
  Serious: Yes (Other)
  Sender: FDA-Public Use
  Company Number: 2012SP000868

PATIENT
  Age: 27 Month
  Sex: Male
  Weight: 15 kg

DRUGS (5)
  1. DESLORATADINE [Suspect]
     Indication: PHARYNGITIS
     Dosage: 2.5 ML;PO
     Route: 048
     Dates: start: 20111130, end: 20111209
  2. DESLORATADINE [Suspect]
     Indication: RHINITIS
     Dosage: 2.5 ML;PO
     Route: 048
     Dates: start: 20111130, end: 20111209
  3. VENTOLIN [Concomitant]
  4. CEFPODOXIME PROXETIL [Concomitant]
  5. FLUTICASONE PROPIONATE [Concomitant]

REACTIONS (2)
  - PARTIAL SEIZURES [None]
  - PETIT MAL EPILEPSY [None]
